FAERS Safety Report 26113688 (Version 2)
Quarter: 2025Q4

REPORT INFORMATION
  Report Type: Spontaneous
  Country: US (occurrence: US)
  Receive Date: 20251202
  Receipt Date: 20251212
  Transmission Date: 20260118
  Serious: Yes (Hospitalization)
  Sender: MERCK SHARP & DOHME LLC
  Company Number: US-009507513-2351561

PATIENT
  Age: 72 Year
  Sex: Female
  Weight: 64.5 kg

DRUGS (27)
  1. PEMBROLIZUMAB [Suspect]
     Active Substance: PEMBROLIZUMAB
     Indication: Non-small cell lung cancer
     Dosage: TIME INTERVAL: CYCLICAL
     Route: 042
     Dates: start: 20250304, end: 20250909
  2. ACETAMINOPHEN [Concomitant]
     Active Substance: ACETAMINOPHEN
     Dates: start: 20190306
  3. ATORVASTATIN [Concomitant]
     Active Substance: ATORVASTATIN
     Dates: start: 20200727
  4. BENZONATATE [Concomitant]
     Active Substance: BENZONATATE
     Dates: start: 20250118
  5. CHLORTHALIDONE [Concomitant]
     Active Substance: CHLORTHALIDONE
     Dates: start: 20150723
  6. CHOLECALCIFEROL [Concomitant]
     Active Substance: CHOLECALCIFEROL
     Dates: start: 20150423
  7. DULOXETINE [Concomitant]
     Active Substance: DULOXETINE
     Dates: start: 20250131
  8. HYDRALAZINE [Concomitant]
     Active Substance: HYDRALAZINE HYDROCHLORIDE
     Dates: start: 20181119
  9. NALOXONE [Concomitant]
     Active Substance: NALOXONE
     Dates: start: 20190206
  10. NIFEDIPINE [Concomitant]
     Active Substance: NIFEDIPINE
     Dates: start: 20150908
  11. POTASSIUM CHLORIDE [Concomitant]
     Active Substance: POTASSIUM CHLORIDE
     Dates: start: 20250202
  12. FOLIC ACID [Concomitant]
     Active Substance: FOLIC ACID
     Dates: start: 20250303
  13. CETIRIZINE [Concomitant]
     Active Substance: CETIRIZINE HYDROCHLORIDE
     Dates: start: 20120510
  14. DESONIDE [Concomitant]
     Active Substance: DESONIDE
     Dates: start: 20250325
  15. NIFEDIPINE [Concomitant]
     Active Substance: NIFEDIPINE
     Dates: start: 20250602
  16. LIDOCAINE [Concomitant]
     Active Substance: LIDOCAINE
     Dates: start: 20250615
  17. MORPHINE [Concomitant]
     Active Substance: MORPHINE
     Dates: start: 20250602
  18. ESZOPICLONE [Concomitant]
     Active Substance: ESZOPICLONE
     Dates: start: 20250819
  19. TRIAMCINOLONE [Concomitant]
     Active Substance: TRIAMCINOLONE
     Dates: start: 20250930
  20. DOXYCYCLINE HYCLATE [Concomitant]
     Active Substance: DOXYCYCLINE HYCLATE
     Dates: start: 20250930
  21. DIPHENHYDRAMINE [Concomitant]
     Active Substance: DIPHENHYDRAMINE
     Dates: start: 20250929
  22. FAMOTIDINE [Concomitant]
     Active Substance: FAMOTIDINE
     Dates: start: 20180711
  23. POLYETHYLENE GLYCOL 3350 [Concomitant]
     Active Substance: POLYETHYLENE GLYCOL 3350
     Dates: start: 20250202
  24. ONDANSETRON [Concomitant]
     Active Substance: ONDANSETRON
     Dates: start: 20250304
  25. PROCHLORPERAZINE [Concomitant]
     Active Substance: PROCHLORPERAZINE
     Dates: start: 20250304
  26. PEMETREXED [Suspect]
     Active Substance: PEMETREXED
     Indication: Non-small cell lung cancer
     Dosage: TIME INTERVAL: CYCLICAL
     Route: 042
     Dates: start: 20250304
  27. CARBOPLATIN [Suspect]
     Active Substance: CARBOPLATIN
     Indication: Non-small cell lung cancer
     Dosage: TIME INTERVAL: CYCLICAL
     Route: 042
     Dates: start: 20250304, end: 20250527

REACTIONS (1)
  - Neurodermatitis [Not Recovered/Not Resolved]

NARRATIVE: CASE EVENT DATE: 20250916
